FAERS Safety Report 10197726 (Version 1)
Quarter: 2014Q2

REPORT INFORMATION
  Report Type: Spontaneous
  Country: US (occurrence: US)
  Receive Date: 20140527
  Receipt Date: 20140527
  Transmission Date: 20141212
  Serious: No
  Sender: FDA-Public Use
  Company Number: US-PFIZER INC-2014141838

PATIENT
  Age: 76 Year
  Sex: Male
  Weight: 85.26 kg

DRUGS (4)
  1. GABAPENTIN [Suspect]
     Indication: NEUROPATHY PERIPHERAL
     Dosage: 400 MG, UNK
  2. GABAPENTIN [Suspect]
     Dosage: 400 MG, 6X/DAY
     Dates: end: 201405
  3. VITAMIN B6 [Concomitant]
     Dosage: 200 MG, 1X/DAY
     Dates: start: 1997
  4. XANAX [Concomitant]
     Dosage: UNK

REACTIONS (1)
  - Hypoaesthesia [Unknown]
